FAERS Safety Report 8935271 (Version 1)
Quarter: 2012Q4

REPORT INFORMATION
  Report Type: 
  Country: AU (occurrence: AU)
  Receive Date: 20121129
  Receipt Date: 20121129
  Transmission Date: 20130627
  Serious: Yes (Other)
  Sender: FDA-Public Use
  Company Number: AU-ABBOTT-12P-008-1012180-00

PATIENT
  Sex: Female

DRUGS (1)
  1. HUMIRA [Suspect]
     Indication: RHEUMATOID ARTHRITIS
     Dates: start: 20120317

REACTIONS (5)
  - Polycystic ovaries [Unknown]
  - Tooth infection [Unknown]
  - Malaise [Unknown]
  - Increased bronchial secretion [Unknown]
  - Joint stiffness [Unknown]
